FAERS Safety Report 17137193 (Version 2)
Quarter: 2019Q4

REPORT INFORMATION
  Report Type: Report from Study
  Country: US (occurrence: US)
  Receive Date: 20191210
  Receipt Date: 20191227
  Transmission Date: 20200122
  Serious: Yes (Hospitalization)
  Sender: FDA-Public Use
  Company Number: US-PFIZER INC-2019448177

PATIENT
  Age: 59 Year
  Sex: Female

DRUGS (1)
  1. XELJANZ XR [Suspect]
     Active Substance: TOFACITINIB CITRATE
     Indication: RHEUMATOID ARTHRITIS
     Dosage: 11 MG, DAILY
     Route: 048
     Dates: start: 2018

REACTIONS (5)
  - Back pain [Not Recovered/Not Resolved]
  - Musculoskeletal stiffness [Unknown]
  - Bronchitis [Unknown]
  - Pain in extremity [Not Recovered/Not Resolved]
  - Bronchitis chronic [Unknown]

NARRATIVE: CASE EVENT DATE: 201909
